FAERS Safety Report 7076823-X (Version None)
Quarter: 2010Q4

REPORT INFORMATION
  Report Type: 
  Country: None (occurrence: None)
  Receive Date: 20101101
  Receipt Date: 20101015
  Transmission Date: 20110411
  Serious: Yes (Other)
  Sender: FDA-Public Use
  Company Number: US-BAYER-201024917NA

PATIENT
  Age: 29 Year
  Sex: Female

DRUGS (9)
  1. YAZ [Suspect]
     Indication: CONTRACEPTION
     Route: 048
     Dates: start: 20060930, end: 20091016
  2. YASMIN [Suspect]
     Indication: CONTRACEPTION
     Route: 048
     Dates: start: 20050830, end: 20060929
  3. AMOXICILLIN [Concomitant]
  4. IMITREX [Concomitant]
  5. HYDROCODONE [Concomitant]
  6. WELLBUTRIN XL [Concomitant]
  7. CELEXA [Concomitant]
  8. EFFEXOR [Concomitant]
  9. MULTI-VITAMIN [Concomitant]

REACTIONS (5)
  - ABDOMINAL PAIN [None]
  - ABDOMINAL PAIN UPPER [None]
  - CHEST PAIN [None]
  - CHOLECYSTITIS CHRONIC [None]
  - GALLBLADDER POLYP [None]
